FAERS Safety Report 25433487 (Version 1)
Quarter: 2025Q2

REPORT INFORMATION
  Report Type: Other
  Country: JP (occurrence: JP)
  Receive Date: 20250613
  Receipt Date: 20250613
  Transmission Date: 20250717
  Serious: Yes (Life-Threatening, Hospitalization, Other)
  Sender: Phathom Pharmaceuticals
  Company Number: JP-PHATHOM PHARMACEUTICALS INC.-2025PHT01430

PATIENT
  Age: 72 Year
  Sex: Female
  Weight: 53.5 kg

DRUGS (9)
  1. VONOPRAZAN FUMARATE [Suspect]
     Active Substance: VONOPRAZAN FUMARATE
     Indication: Gastrooesophageal reflux disease
     Dosage: 10 MG, 1X/DAY
     Route: 048
     Dates: start: 20170130, end: 20250316
  2. AMLODIPINE [Concomitant]
     Active Substance: AMLODIPINE BESYLATE
  3. INDOMETHACIN FARNESIL [Concomitant]
     Active Substance: INDOMETHACIN FARNESIL
     Dates: start: 20250216, end: 20250309
  4. CINAL [ASCORBIC ACID;CALCIUM PANTOTHENATE] [Concomitant]
  5. TOCOPHERYL NICOTINATE [Concomitant]
     Active Substance: TOCOPHERYL NICOTINATE, D-.ALPHA.
  6. VALSARTAN [Concomitant]
     Active Substance: VALSARTAN
  7. VIMPAT [Concomitant]
     Active Substance: LACOSAMIDE
  8. BERAPROST SODIUM [Concomitant]
     Active Substance: BERAPROST SODIUM
  9. MOSAPRIDE CITRATE [Concomitant]
     Active Substance: MOSAPRIDE CITRATE

REACTIONS (7)
  - Hypokalaemia [Recovered/Resolved]
  - Hypocalcaemia [Recovered/Resolved]
  - Hypomagnesaemia [Recovered/Resolved]
  - Seizure [Recovered/Resolved]
  - Decreased appetite [Recovering/Resolving]
  - Vomiting [Recovering/Resolving]
  - Nausea [Recovering/Resolving]

NARRATIVE: CASE EVENT DATE: 20250225
